FAERS Safety Report 6733563-1 (Version None)
Quarter: 2010Q2

REPORT INFORMATION
  Report Type: 
  Country: None (occurrence: None)
  Receive Date: 20100518
  Receipt Date: 20100503
  Transmission Date: 20101027
  Serious: Yes (Other)
  Sender: FDA-Public Use
  Company Number: 7003630

PATIENT
  Age: 38 Year
  Sex: Female

DRUGS (1)
  1. REBIF [Suspect]
     Indication: RELAPSING-REMITTING MULTIPLE SCLEROSIS
     Dosage: 44 MCG, 3 IN 1 WK, SUBCUTANEOUS
     Route: 058
     Dates: start: 20080416

REACTIONS (5)
  - ABDOMINAL PAIN UPPER [None]
  - BLOOD URINE PRESENT [None]
  - BURNING SENSATION [None]
  - EATING DISORDER [None]
  - OPTIC NEURITIS [None]
